FAERS Safety Report 24056907 (Version 1)
Quarter: 2024Q3

REPORT INFORMATION
  Report Type: Report from Study
  Country: US (occurrence: US)
  Receive Date: 20240706
  Receipt Date: 20240706
  Transmission Date: 20241017
  Serious: Yes (Other)
  Sender: ABBVIE
  Company Number: US-ABBVIE-5826704

PATIENT
  Sex: Female

DRUGS (2)
  1. QULIPTA [Suspect]
     Active Substance: ATOGEPANT
     Indication: Product used for unknown indication
     Dosage: FORM STRENGTH; 10MG
     Route: 048
     Dates: start: 2024
  2. QULIPTA [Suspect]
     Active Substance: ATOGEPANT
     Indication: Product used for unknown indication
     Dosage: FORM STRENGTH; 10MG
     Route: 048

REACTIONS (3)
  - Intervertebral disc operation [Recovering/Resolving]
  - Migraine [Unknown]
  - Intervertebral disc protrusion [Unknown]

NARRATIVE: CASE EVENT DATE: 20240101
